FAERS Safety Report 16499770 (Version 4)
Quarter: 2020Q3

REPORT INFORMATION
  Report Type: Spontaneous
  Country: SK (occurrence: SK)
  Receive Date: 20190701
  Receipt Date: 20200831
  Transmission Date: 20201102
  Serious: Yes (Hospitalization, Other)
  Sender: FDA-Public Use
  Company Number: SK-ACCORD-135126

PATIENT
  Age: 53 Year
  Sex: Female

DRUGS (26)
  1. CARVEDILOL/CARVEDILOL HYDROCHLODRIDE [Concomitant]
     Active Substance: CARVEDILOL HYDROCHLORIDE
  2. EPLERENONE. [Concomitant]
     Active Substance: EPLERENONE
  3. NEOTONE [Concomitant]
  4. RIVAROXABAN [Concomitant]
     Active Substance: RIVAROXABAN
  5. UBIDECARENONE [Concomitant]
     Active Substance: UBIDECARENONE
  6. LEVOSIMENDAN [Concomitant]
     Active Substance: LEVOSIMENDAN
  7. LETROZOLE. [Suspect]
     Active Substance: LETROZOLE
     Indication: BREAST CANCER
  8. SPIRONOLACTONE. [Concomitant]
     Active Substance: SPIRONOLACTONE
  9. CANDESARTAN. [Concomitant]
     Active Substance: CANDESARTAN
  10. MAGNESIUM [Concomitant]
     Active Substance: MAGNESIUM
  11. SACUBITRIL/VALSARTAN [Concomitant]
     Active Substance: SACUBITRIL\VALSARTAN
  12. MILURIT [Concomitant]
     Active Substance: ALLOPURINOL
  13. PARACETAMOL [Concomitant]
     Active Substance: ACETAMINOPHEN
  14. TRASTUZUMAB. [Suspect]
     Active Substance: TRASTUZUMAB
     Indication: BREAST CANCER
     Dosage: REPEATED CYCLES
  15. TRANDOLAPRIL. [Concomitant]
     Active Substance: TRANDOLAPRIL
  16. METAMIZOLE SODIUM [Concomitant]
     Active Substance: METAMIZOLE SODIUM
  17. DOCETAXEL. [Suspect]
     Active Substance: DOCETAXEL
     Indication: BREAST CANCER
     Dosage: REPEATED CYCLES
  18. FUROSEMIDE. [Suspect]
     Active Substance: FUROSEMIDE
     Indication: DIURETIC THERAPY
  19. TRIMETAZIDINE [Concomitant]
     Active Substance: TRIMETAZIDINE
  20. OXYCODONE/NALOXONE [Concomitant]
     Active Substance: NALOXONE HYDROCHLORIDE\OXYCODONE HYDROCHLORIDE
  21. NOREPINEPHRINE. [Concomitant]
     Active Substance: NOREPINEPHRINE
  22. DOXORUBICIN [Suspect]
     Active Substance: DOXORUBICIN
     Indication: BREAST CANCER
     Dosage: REPEATED CYCLES?240 MG / M2, WITH DOSES UP TO 300 MG / M2
  23. CYCLOPHOSPHAMIDE/CYCLOPHOSPHAMIDE MONOHYDRATE [Suspect]
     Active Substance: CYCLOPHOSPHAMIDE
     Indication: BREAST CANCER
     Dosage: REPEATED CYCLES
  24. LEVOCARNITINE. [Concomitant]
     Active Substance: LEVOCARNITINE
  25. METOPROLOL. [Concomitant]
     Active Substance: METOPROLOL
  26. IVABRADINE/IVABRADINE HYDROCHLORIDE [Concomitant]
     Active Substance: IVABRADINE HYDROCHLORIDE

REACTIONS (13)
  - Cardiac failure chronic [Recovering/Resolving]
  - Spinal pain [Unknown]
  - Tachypnoea [Recovering/Resolving]
  - Pulmonary congestion [Recovering/Resolving]
  - Obesity [Unknown]
  - Cough [Recovering/Resolving]
  - Fatigue [Recovering/Resolving]
  - Dizziness [Recovered/Resolved]
  - Congestive cardiomyopathy [Recovering/Resolving]
  - Oedema peripheral [Recovered/Resolved]
  - Dyspnoea [Recovering/Resolving]
  - Ventricular hypokinesia [Recovering/Resolving]
  - Orthopnoea [Recovering/Resolving]

NARRATIVE: CASE EVENT DATE: 201601
